FAERS Safety Report 18962239 (Version 1)
Quarter: 2021Q1

REPORT INFORMATION
  Report Type: Spontaneous
  Country: US (occurrence: US)
  Receive Date: 20210302
  Receipt Date: 20210302
  Transmission Date: 20210420
  Serious: No
  Sender: FDA-Public Use
  Company Number: None

PATIENT
  Age: 84 Year
  Sex: Male
  Weight: 71.21 kg

DRUGS (1)
  1. LEVOFLOXACIN (LEVOFLOXACIN 750MG TAB) [Suspect]
     Active Substance: LEVOFLOXACIN
     Route: 048
     Dates: start: 20200220, end: 20200225

REACTIONS (3)
  - Rash [None]
  - Pruritus [None]
  - Urticaria [None]

NARRATIVE: CASE EVENT DATE: 20200225
